FAERS Safety Report 14226120 (Version 1)
Quarter: 2017Q4

REPORT INFORMATION
  Report Type: Spontaneous
  Country: US (occurrence: None)
  Receive Date: 20171124
  Receipt Date: 20171124
  Transmission Date: 20180321
  Serious: Yes (Hospitalization)
  Sender: FDA-Public Use
  Company Number: None

PATIENT
  Age: 53 Year
  Sex: Female

DRUGS (1)
  1. EPCLUSA [Suspect]
     Active Substance: SOFOSBUVIR\VELPATASVIR
     Indication: HEPATITIS C
     Dosage: 400/100 MG DAILY PO
     Route: 048
     Dates: start: 20170915

REACTIONS (3)
  - Dehydration [None]
  - Urinary incontinence [None]
  - Hypertension [None]

NARRATIVE: CASE EVENT DATE: 20171011
